FAERS Safety Report 8349180-6 (Version None)
Quarter: 2012Q2

REPORT INFORMATION
  Report Type: 
  Country: None (occurrence: None)
  Receive Date: 20120510
  Receipt Date: 20120501
  Transmission Date: 20120825
  Serious: Yes (Hospitalization, Other)
  Sender: FDA-Public Use
  Company Number: US-BRISTOL-MYERS SQUIBB COMPANY-16564148

PATIENT
  Age: 69 Year
  Sex: Male

DRUGS (2)
  1. YERVOY [Suspect]
     Dosage: LAST TREATMENT (4TH INFUSION) ON 26-APR-2012.
  2. INTERFERON [Suspect]

REACTIONS (3)
  - CELLULITIS [None]
  - DIARRHOEA [None]
  - FATIGUE [None]
